FAERS Safety Report 6874415-6 (Version None)
Quarter: 2010Q3

REPORT INFORMATION
  Report Type: 
  Country: None (occurrence: None)
  Receive Date: 20100723
  Receipt Date: 20100723
  Transmission Date: 20110219
  Serious: Yes (Hospitalization)
  Sender: FDA-Public Use
  Company Number: None

PATIENT
  Sex: Male
  Weight: 98 kg

DRUGS (6)
  1. CYCLOPHOSPHAMIDE [Suspect]
     Dosage: 4280 MG
  2. CYTARABINE [Suspect]
     Dosage: 2560 MG
  3. MERCAPTOPURINE [Suspect]
     Dosage: 3700 MG
  4. METHOTREXATE [Suspect]
     Dosage: 60 MG
  5. PEG-L-ASPARAGINASE (K-H) [Suspect]
  6. VINCRISTINE SULFATE [Suspect]
     Dosage: 3 MG

REACTIONS (24)
  - BONE MARROW FAILURE [None]
  - CHEST PAIN [None]
  - CHILLS [None]
  - DECREASED APPETITE [None]
  - DIARRHOEA [None]
  - DYSPNOEA [None]
  - EAR CONGESTION [None]
  - EAR PAIN [None]
  - FATIGUE [None]
  - HEAD INJURY [None]
  - HEADACHE [None]
  - HYPERHIDROSIS [None]
  - LUNG INFILTRATION [None]
  - NAUSEA [None]
  - NEUTROPENIA [None]
  - ORAL HERPES [None]
  - OROPHARYNGEAL PAIN [None]
  - PAIN IN EXTREMITY [None]
  - PARANASAL SINUS MUCOSAL HYPERTROPHY [None]
  - PERIORBITAL HAEMATOMA [None]
  - PERIPHERAL SENSORIMOTOR NEUROPATHY [None]
  - POST LUMBAR PUNCTURE SYNDROME [None]
  - PYREXIA [None]
  - VOMITING [None]
